FAERS Safety Report 7748407-9 (Version None)
Quarter: 2011Q3

REPORT INFORMATION
  Report Type: 
  Country: None (occurrence: None)
  Receive Date: 20110913
  Receipt Date: 20110906
  Transmission Date: 20111222
  Serious: Yes (Hospitalization)
  Sender: FDA-Public Use
  Company Number: JP-BRISTOL-MYERS SQUIBB COMPANY-16051021

PATIENT
  Age: 69 Year
  Sex: Female

DRUGS (3)
  1. CLONAZEPAM [Concomitant]
     Dosage: TABS
  2. LORAZEPAM [Concomitant]
     Dosage: TABS
  3. ABILIFY [Suspect]
     Indication: SCHIZOPHRENIA
     Dosage: STARTED AT 18MG AND INCREASED TO 30MG AT REG 2 (AUG2011)
     Route: 048

REACTIONS (1)
  - ALTERED STATE OF CONSCIOUSNESS [None]
